FAERS Safety Report 5486887-2 (Version None)
Quarter: 2007Q3

REPORT INFORMATION
  Report Type: 
  Country: None (occurrence: None)
  Receive Date: 20070925
  Receipt Date: 20070605
  Transmission Date: 20080115
  Serious: No
  Sender: FDA-Public Use
  Company Number: 2007US001323

PATIENT
  Sex: Male

DRUGS (3)
  1. VESICARE [Suspect]
     Indication: POLLAKIURIA
     Dosage: 5MG, ORAL
     Route: 048
  2. PHENAZOPYRIDINE HCL TAB [Concomitant]
  3. PRILOSEC [Concomitant]

REACTIONS (1)
  - URINARY RETENTION [None]
